FAERS Safety Report 25750818 (Version 1)
Quarter: 2025Q3

REPORT INFORMATION
  Report Type: Spontaneous
  Country: US (occurrence: US)
  Receive Date: 20250902
  Receipt Date: 20250902
  Transmission Date: 20251021
  Serious: No
  Sender: SANOFI AVENTIS
  Company Number: US-SA-2025SA259723

PATIENT
  Sex: Female

DRUGS (10)
  1. DUPIXENT [Suspect]
     Active Substance: DUPILUMAB
     Indication: Dermatitis atopic
     Dosage: 300 MG, QOW
     Route: 058
  2. ABILIFY [Concomitant]
     Active Substance: ARIPIPRAZOLE
  3. BUPROPION [Concomitant]
     Active Substance: BUPROPION
  4. CLONAZEPAM [Concomitant]
     Active Substance: CLONAZEPAM
  5. DILTIAZEM [Concomitant]
     Active Substance: DILTIAZEM
  6. LAMOTRIGINE [Concomitant]
     Active Substance: LAMOTRIGINE
  7. LEVOTHYROXINE [Concomitant]
     Active Substance: LEVOTHYROXINE
  8. ROSUVASTATIN [Concomitant]
     Active Substance: ROSUVASTATIN
  9. ZETIA [Concomitant]
     Active Substance: EZETIMIBE
  10. ZOLPIDEM [Concomitant]
     Active Substance: ZOLPIDEM TARTRATE

REACTIONS (1)
  - Injection site pain [Not Recovered/Not Resolved]
